FAERS Safety Report 9011939 (Version 2)
Quarter: 2013Q1

REPORT INFORMATION
  Report Type: Spontaneous
  Country: US (occurrence: US)
  Receive Date: 20130107
  Receipt Date: 20130321
  Transmission Date: 20140127
  Serious: Yes (Hospitalization, Other)
  Sender: FDA-Public Use
  Company Number: US-ABBOTT-12P-163-1028729-00

PATIENT
  Age: 81 Year
  Sex: Male
  Weight: 63.11 kg

DRUGS (5)
  1. LUPRON DEPOT [Suspect]
     Indication: PROSTATE CANCER
     Dates: start: 20121226, end: 20130129
  2. BUFFERIN [Concomitant]
     Indication: PRODUCT USED FOR UNKNOWN INDICATION
     Route: 048
  3. ATORVASTATIN [Concomitant]
     Indication: PRODUCT USED FOR UNKNOWN INDICATION
     Dosage: 10 MG QHS
     Route: 048
  4. METOPROLOL TARTRATE [Concomitant]
     Indication: PRODUCT USED FOR UNKNOWN INDICATION
     Route: 048
  5. TIMOLOL [Concomitant]
     Indication: PRODUCT USED FOR UNKNOWN INDICATION
     Route: 047

REACTIONS (14)
  - Renal failure acute [Unknown]
  - Unresponsive to stimuli [Recovered/Resolved]
  - Hypoxia [Unknown]
  - Confusional state [Recovered/Resolved]
  - Dizziness [Unknown]
  - Anaphylactic reaction [Unknown]
  - Hypotension [Recovered/Resolved]
  - Haematuria [Unknown]
  - Pneumonia [Unknown]
  - Sepsis [Unknown]
  - Hyperkalaemia [Unknown]
  - Cardiac disorder [Unknown]
  - Bundle branch block right [Unknown]
  - Transient ischaemic attack [Unknown]
